FAERS Safety Report 24568577 (Version 1)
Quarter: 2024Q4

REPORT INFORMATION
  Report Type: Spontaneous
  Country: US (occurrence: None)
  Receive Date: 20241030
  Receipt Date: 20241030
  Transmission Date: 20250114
  Serious: No
  Sender: Public
  Company Number: None

PATIENT
  Age: 69 Year
  Sex: Female

DRUGS (1)
  1. DUPIXENT [Suspect]
     Active Substance: DUPILUMAB
     Indication: Asthma
     Route: 058
     Dates: start: 20241025, end: 20241025

REACTIONS (3)
  - Hypersensitivity [None]
  - Urticaria [None]
  - Dysphonia [None]

NARRATIVE: CASE EVENT DATE: 20241025
